FAERS Safety Report 20408449 (Version 4)
Quarter: 2022Q2

REPORT INFORMATION
  Report Type: Report from Study
  Country: US (occurrence: US)
  Receive Date: 20220201
  Receipt Date: 20220418
  Transmission Date: 20220720
  Serious: No
  Sender: FDA-Public Use
  Company Number: US-NOVARTISTESTPH-NVSC2022US020824

PATIENT
  Age: 79 Year
  Sex: Female

DRUGS (1)
  1. KISQALI [Suspect]
     Active Substance: RIBOCICLIB
     Indication: Product used for unknown indication
     Dosage: UNK
     Route: 048

REACTIONS (8)
  - Feeling abnormal [Unknown]
  - Chills [Unknown]
  - Vomiting [Unknown]
  - Diarrhoea [Unknown]
  - Dry skin [Unknown]
  - Constipation [Unknown]
  - Fatigue [Unknown]
  - Back pain [Unknown]

NARRATIVE: CASE EVENT DATE: 20220127
